FAERS Safety Report 14770523 (Version 1)
Quarter: 2018Q2

REPORT INFORMATION
  Report Type: Spontaneous
  Country: US (occurrence: US)
  Receive Date: 20180417
  Receipt Date: 20180417
  Transmission Date: 20180711
  Serious: No
  Sender: FDA-Public Use
  Company Number: US-MYLANLABS-2018M1021359

PATIENT
  Sex: Female

DRUGS (1)
  1. AMFETAMINE/DEXAMFETAMINE [Suspect]
     Active Substance: AMPHETAMINE SULFATE\DEXTROAMPHETAMINE
     Indication: ATTENTION DEFICIT/HYPERACTIVITY DISORDER
     Dosage: 15 MG, UNK
     Route: 048

REACTIONS (8)
  - Adverse event [Unknown]
  - Headache [Unknown]
  - Discomfort [Unknown]
  - Constricted affect [Unknown]
  - Unevaluable event [Unknown]
  - Drug ineffective [Unknown]
  - Feeling abnormal [Unknown]
  - Apathy [Unknown]
